FAERS Safety Report 13021085 (Version 1)
Quarter: 2016Q4

REPORT INFORMATION
  Report Type: Report from Study
  Country: US (occurrence: US)
  Receive Date: 20161213
  Receipt Date: 20161213
  Transmission Date: 20170207
  Serious: Yes (Other)
  Sender: FDA-Public Use
  Company Number: US-ROCHE-1866026

PATIENT
  Age: 69 Year
  Sex: Female
  Weight: 72.1 kg

DRUGS (2)
  1. BEVACIZUMAB [Suspect]
     Active Substance: BEVACIZUMAB
     Indication: NEOPLASM
     Dosage: COURSE ID 2002 : 10/SEP/2012; COURSE ID 2003: 09/OCT/2012; COURSE ID 2004: 05/NOV/2012
     Route: 042
     Dates: start: 20120910, end: 20121203
  2. DASATINIB [Suspect]
     Active Substance: DASATINIB
     Indication: NEOPLASM
     Dosage: COURSE ID 2002 : 10/SEP/2012; COURSE ID 2003: 09/OCT/2012; COURSE ID 2004: 05/NOV/2012
     Route: 048
     Dates: start: 20120910, end: 20121203

REACTIONS (2)
  - Lymphocyte count decreased [Unknown]
  - Ascites [Unknown]
